FAERS Safety Report 25339907 (Version 1)
Quarter: 2025Q2

REPORT INFORMATION
  Report Type: Spontaneous
  Country: GB (occurrence: GB)
  Receive Date: 20250521
  Receipt Date: 20250521
  Transmission Date: 20250716
  Serious: Yes (Hospitalization)
  Sender: CELLTRION
  Company Number: GB-CELLTRION INC.-2025GB014842

PATIENT

DRUGS (1)
  1. YUFLYMA [Suspect]
     Active Substance: ADALIMUMAB-AATY
     Indication: Rheumatoid arthritis
     Dosage: 40 MG PRE-FILLED PEN EVERY TWO WEEKS
     Route: 058
     Dates: start: 202408

REACTIONS (3)
  - Hospitalisation [Unknown]
  - Antibiotic therapy [Unknown]
  - Product dose omission issue [Unknown]
